FAERS Safety Report 17027676 (Version 1)
Quarter: 2019Q4

REPORT INFORMATION
  Report Type: Spontaneous
  Country: GB (occurrence: GB)
  Receive Date: 20191113
  Receipt Date: 20191113
  Transmission Date: 20200122
  Serious: Yes (Life-Threatening, Hospitalization)
  Sender: FDA-Public Use
  Company Number: GB-VERTEX PHARMACEUTICALS-2019-010906

PATIENT
  Age: 28 Year
  Sex: Female
  Weight: 44 kg

DRUGS (3)
  1. CREON [Concomitant]
     Active Substance: PANCRELIPASE AMYLASE\PANCRELIPASE LIPASE\PANCRELIPASE PROTEASE
  2. ORKAMBI [Suspect]
     Active Substance: IVACAFTOR\LUMACAFTOR
     Indication: CYSTIC FIBROSIS
     Route: 048
     Dates: start: 20180620, end: 20180706
  3. CAYSTON [Concomitant]
     Active Substance: AZTREONAM

REACTIONS (2)
  - Respiratory failure [Recovered/Resolved with Sequelae]
  - Infective pulmonary exacerbation of cystic fibrosis [Recovered/Resolved with Sequelae]

NARRATIVE: CASE EVENT DATE: 20180721
